FAERS Safety Report 7472688-2 (Version None)
Quarter: 2011Q2

REPORT INFORMATION
  Report Type: 
  Country: None (occurrence: None)
  Receive Date: 20110511
  Receipt Date: 20110502
  Transmission Date: 20111010
  Serious: Yes (Other)
  Sender: FDA-Public Use
  Company Number: US-ASTRAZENECA-2011SE19263

PATIENT
  Age: 65 Year
  Sex: Female

DRUGS (1)
  1. CRESTOR [Suspect]
     Route: 048

REACTIONS (7)
  - JOINT SWELLING [None]
  - FIBROMYALGIA [None]
  - ALOPECIA [None]
  - LUNG DISORDER [None]
  - ROAD TRAFFIC ACCIDENT [None]
  - THYROID DISORDER [None]
  - SPINAL DISORDER [None]
